FAERS Safety Report 8722378 (Version 3)
Quarter: 2013Q4

REPORT INFORMATION
  Report Type: Spontaneous
  Country: US (occurrence: US)
  Receive Date: 20120814
  Receipt Date: 20131226
  Transmission Date: 20140711
  Serious: No
  Sender: FDA-Public Use
  Company Number: PHEH2012US001538

PATIENT
  Age: 53 Year
  Sex: Female
  Weight: 68 kg

DRUGS (4)
  1. GILENYA [Suspect]
     Indication: MULTIPLE SCLEROSIS
     Dosage: 0.5 MG, QD
     Route: 048
     Dates: start: 20111220
  2. RESTORIL (TEMAZEPAM) [Concomitant]
  3. PREMARIN (ESTROGENS CONJUGATED) [Concomitant]
  4. PAXIL (PAROXETINE HYDROCHLORIDE) [Concomitant]

REACTIONS (2)
  - Anxiety [Unknown]
  - Depressed mood [Unknown]
